FAERS Safety Report 6570974-1 (Version None)
Quarter: 2010Q1

REPORT INFORMATION
  Report Type: 
  Country: None (occurrence: None)
  Receive Date: 20100204
  Receipt Date: 20100125
  Transmission Date: 20100710
  Serious: Yes (Other)
  Sender: FDA-Public Use
  Company Number: PHEH2008US05593

PATIENT

DRUGS (11)
  1. ZOMETA [Suspect]
     Indication: MULTIPLE MYELOMA
     Dosage: MONTHLY
  2. THEOPHYLLINE [Concomitant]
     Dosage: 300 MG TABLETS
  3. FLOVENT [Concomitant]
     Dosage: 11O MCG
  4. CELEBREX [Concomitant]
     Dosage: 200 MG CAPSULES
  5. WARFARIN [Concomitant]
     Dosage: 5 MG TABLETS
  6. PRAVACHOL [Concomitant]
     Dosage: 80 MG TABLETS
  7. ALBUTEROL [Concomitant]
     Dosage: 90 MCG
  8. ATROVENT [Concomitant]
     Dosage: UNK
  9. CIMETIDINE [Concomitant]
     Dosage: 300 MG TABLETS
  10. DEXAMETHASONE [Concomitant]
     Dosage: 4 MG TABLETS
  11. VIOXX [Concomitant]
     Dosage: 50 MG TABLETS

REACTIONS (21)
  - ANHEDONIA [None]
  - ANXIETY [None]
  - ARTHRITIS [None]
  - ASTHMA [None]
  - BONE DISORDER [None]
  - DENTAL CARIES [None]
  - DYSPNOEA [None]
  - EAR PAIN [None]
  - EDENTULOUS [None]
  - GINGIVAL BLEEDING [None]
  - INJURY [None]
  - LUNG DISORDER [None]
  - NECK INJURY [None]
  - OEDEMA MOUTH [None]
  - OSTEONECROSIS [None]
  - PAIN [None]
  - PAIN IN JAW [None]
  - SURGERY [None]
  - TINNITUS [None]
  - TOOTH EXTRACTION [None]
  - ULCER [None]
